FAERS Safety Report 7775018-1 (Version None)
Quarter: 2011Q3

REPORT INFORMATION
  Report Type: 
  Country: None (occurrence: None)
  Receive Date: 20110923
  Receipt Date: 20110912
  Transmission Date: 20111222
  Serious: Yes (Other)
  Sender: FDA-Public Use
  Company Number: GB-PERRIGO-11GB007467

PATIENT
  Age: 53 Year
  Sex: Female
  Weight: 53 kg

DRUGS (8)
  1. NAPROXEN SODIUM [Suspect]
     Indication: JOINT INJURY
     Dosage: 500 MG, BID
     Route: 048
     Dates: start: 20110619, end: 20110630
  2. CHLOROMYCETIN [Suspect]
     Indication: UVEITIS
  3. ENALAPRIL MALEATE [Concomitant]
     Indication: HYPERTENSION
     Dosage: 5 MG
     Route: 048
     Dates: start: 20070101
  4. HYPROMELLOSE [Concomitant]
     Indication: UVEITIS
     Dosage: UNK
     Route: 047
     Dates: start: 20110101
  5. BENDROFLUMETHIAZIDE [Concomitant]
     Indication: HYPERTENSION
     Dosage: 2.5 MG, UNK
     Route: 048
     Dates: start: 20040101
  6. PREMIQUE 5 [Concomitant]
     Indication: MENOPAUSE
     Dosage: UNK
     Route: 048
     Dates: start: 20110101
  7. PREMIQUE 5 [Concomitant]
     Indication: HYSTERECTOMY
  8. CHLOROMYCETIN [Suspect]
     Indication: OCULAR HYPERAEMIA
     Dosage: UNK
     Route: 047
     Dates: start: 20110706

REACTIONS (4)
  - ANAEMIA [None]
  - MALAISE [None]
  - DIZZINESS [None]
  - PANCYTOPENIA [None]
